FAERS Safety Report 7988377-1 (Version None)
Quarter: 2011Q4

REPORT INFORMATION
  Report Type: 
  Country: None (occurrence: None)
  Receive Date: 20111216
  Receipt Date: 20111116
  Transmission Date: 20120403
  Serious: No
  Sender: FDA-Public Use
  Company Number: US-BAYER-2011-111599

PATIENT
  Age: 77 Year
  Sex: Female
  Weight: 108.84 kg

DRUGS (6)
  1. LOSARTAN POTASSIUM [Concomitant]
  2. ASPIRIN [Suspect]
     Indication: ISCHAEMIC HEART DISEASE PROPHYLAXIS
     Dosage: 1 U, QD
     Route: 048
     Dates: start: 20110901, end: 20111115
  3. ASPIRIN [Suspect]
     Dosage: UNK
     Route: 048
  4. METOPROLOL TARTRATE [Concomitant]
  5. LIPITOR [Concomitant]
  6. OXYBUTYNIN [Concomitant]

REACTIONS (1)
  - CHEST PAIN [None]
